FAERS Safety Report 6036723-0 (Version None)
Quarter: 2009Q1

REPORT INFORMATION
  Report Type: 
  Country: None (occurrence: None)
  Receive Date: 20090114
  Receipt Date: 20090105
  Transmission Date: 20090719
  Serious: Yes (Other)
  Sender: FDA-Public Use
  Company Number: CN-PFIZER INC-2008158808

PATIENT

DRUGS (2)
  1. NORVASC [Suspect]
     Indication: HYPERTENSION
     Route: 048
  2. APROVEL [Concomitant]
     Dosage: UNK
     Route: 048

REACTIONS (1)
  - BLOOD PROLACTIN INCREASED [None]
